FAERS Safety Report 24254301 (Version 1)
Quarter: 2024Q3

REPORT INFORMATION
  Report Type: Report from Study
  Country: US (occurrence: US)
  Receive Date: 20240827
  Receipt Date: 20240827
  Transmission Date: 20241017
  Serious: Yes (Other)
  Sender: SUNOVION
  Company Number: US-SUMITOMO PHARMA SWITZERLAND GMBH-2024SPA001359

PATIENT

DRUGS (2)
  1. ORGOVYX [Suspect]
     Active Substance: RELUGOLIX
     Indication: Prostate cancer
     Dosage: 120 MG, QD
     Route: 048
     Dates: start: 20230927
  2. PREDNISONE [Suspect]
     Active Substance: PREDNISONE
     Route: 065

REACTIONS (8)
  - Metastases to bone [Unknown]
  - Prostatic specific antigen increased [Unknown]
  - Hunger [Unknown]
  - Pruritus [Unknown]
  - Pain [Unknown]
  - Mood altered [Unknown]
  - Rash [Unknown]
  - Fatigue [Unknown]
